FAERS Safety Report 9245744 (Version 2)
Quarter: 2013Q2

REPORT INFORMATION
  Report Type: Spontaneous
  Country: JP (occurrence: JP)
  Receive Date: 20130422
  Receipt Date: 20130516
  Transmission Date: 20140414
  Serious: Yes (Other)
  Sender: FDA-Public Use
  Company Number: JP-ROCHE-1216041

PATIENT
  Age: 67 Year
  Sex: Male

DRUGS (1)
  1. LUCENTIS [Suspect]
     Indication: CHOROIDAL NEOVASCULARISATION
     Route: 050

REACTIONS (3)
  - Macular hole [Recovered/Resolved]
  - Retinal detachment [Recovered/Resolved]
  - Visual impairment [Unknown]
